FAERS Safety Report 9309146 (Version 1)
Quarter: 2013Q2

REPORT INFORMATION
  Report Type: Spontaneous
  Country: US (occurrence: US)
  Receive Date: 20130525
  Receipt Date: 20130525
  Transmission Date: 20140414
  Serious: Yes (Other)
  Sender: FDA-Public Use
  Company Number: US-BRISTOL-MYERS SQUIBB COMPANY-18580019

PATIENT
  Age: 52 Year
  Sex: Female

DRUGS (3)
  1. BYDUREON 2MG VIAL + SYRINGE [Suspect]
     Indication: TYPE 2 DIABETES MELLITUS
     Route: 058
     Dates: start: 20121119, end: 20121126
  2. BYETTA PEN DISPOSABLE [Suspect]
     Route: 058
  3. DECADRON [Concomitant]
     Indication: ANGIOEDEMA
     Route: 030

REACTIONS (4)
  - Angioedema [Unknown]
  - Paraesthesia oral [Unknown]
  - Urticaria [Unknown]
  - Injection site urticaria [Unknown]
